FAERS Safety Report 25226701 (Version 1)
Quarter: 2025Q2

REPORT INFORMATION
  Report Type: Report from Study
  Country: US (occurrence: US)
  Receive Date: 20250422
  Receipt Date: 20250422
  Transmission Date: 20250717
  Serious: Yes (Other)
  Sender: ABBVIE
  Company Number: US-ABBVIE-6240760

PATIENT
  Sex: Female

DRUGS (1)
  1. IMBRUVICA [Suspect]
     Active Substance: IBRUTINIB
     Indication: Chronic lymphocytic leukaemia
     Route: 048
     Dates: start: 202208

REACTIONS (10)
  - Hypertrophic cardiomyopathy [Unknown]
  - Immunoglobulins decreased [Unknown]
  - Urticaria [Unknown]
  - Orthostatic hypotension [Unknown]
  - Skin infection [Unknown]
  - Depressed mood [Unknown]
  - Emotional disorder [Unknown]
  - Social problem [Unknown]
  - Pain [Unknown]
  - Physical disability [Unknown]
